FAERS Safety Report 17373869 (Version 2)
Quarter: 2020Q2

REPORT INFORMATION
  Report Type: Report from Study
  Country: CA (occurrence: CU)
  Receive Date: 20200205
  Receipt Date: 20200416
  Transmission Date: 20200713
  Serious: Yes (Other)
  Sender: FDA-Public Use
  Company Number: CA-JNJFOC-20200146904

PATIENT
  Age: 63 Year
  Sex: Male
  Weight: 75 kg

DRUGS (1)
  1. REMICADE [Suspect]
     Active Substance: INFLIXIMAB
     Indication: COLITIS ULCERATIVE
     Route: 042
     Dates: start: 20100107

REACTIONS (4)
  - Cryptosporidiosis infection [Recovering/Resolving]
  - Dientamoeba infection [Recovering/Resolving]
  - Food poisoning [Recovering/Resolving]
  - Cyclosporidium infection [Recovering/Resolving]

NARRATIVE: CASE EVENT DATE: 202001
